FAERS Safety Report 20626703 (Version 3)
Quarter: 2022Q2

REPORT INFORMATION
  Report Type: Spontaneous
  Country: US (occurrence: US)
  Receive Date: 20220323
  Receipt Date: 20220506
  Transmission Date: 20220720
  Serious: Yes (Other)
  Sender: FDA-Public Use
  Company Number: US-BoehringerIngelheim-2022-BI-160994

PATIENT
  Age: 65 Year
  Sex: Male

DRUGS (18)
  1. PRADAXA [Suspect]
     Active Substance: DABIGATRAN ETEXILATE MESYLATE
     Indication: Product used for unknown indication
     Route: 048
     Dates: start: 2018
  2. JARDIANCE [Suspect]
     Active Substance: EMPAGLIFLOZIN
     Indication: Product used for unknown indication
     Route: 048
  3. melixetine(mexitil) 150MG CAPSULE [Concomitant]
     Indication: Product used for unknown indication
     Route: 048
  4. metformin(glucophage) 1000MG TABLET [Concomitant]
     Indication: Product used for unknown indication
     Route: 048
  5. atorvastatin (LIPITOR) 40MG TABLET [Concomitant]
     Indication: Product used for unknown indication
     Route: 048
  6. POTASIUM CHLORIDE SR (K-TAB) [Concomitant]
     Indication: Muscle spasms
     Route: 048
  7. VENTOLIN HFA [Concomitant]
     Active Substance: ALBUTEROL SULFATE
     Indication: Wheezing
     Dosage: 2 PUFFS?DOSE STRENGTH: 90 MCG/ACTUATION INHALER
  8. LACTULOSE (CHRONULAC) [Concomitant]
     Indication: Product used for unknown indication
     Dosage: FORM STRENGTH: 10 GRAM/15 ML SOLUTION
     Route: 048
  9. URSODIOL (ACTIGALL) [Concomitant]
     Indication: Product used for unknown indication
     Route: 048
  10. COREG [Concomitant]
     Active Substance: CARVEDILOL
     Indication: Product used for unknown indication
     Dosage: WITH MEALS
     Route: 048
  11. TORSEMIDE (DEMADEX) [Concomitant]
     Indication: Product used for unknown indication
     Route: 048
  12. TRAZODONE(DESYREL) [Concomitant]
     Indication: Sleep disorder
     Dosage: TAKES 1.5 TABLETS PO @HS PRN
     Route: 048
  13. ZOLOFT [Concomitant]
     Active Substance: SERTRALINE HYDROCHLORIDE
     Indication: Product used for unknown indication
     Route: 048
  14. ZYLOPRIM [Concomitant]
     Active Substance: ALLOPURINOL
     Indication: Product used for unknown indication
     Route: 048
  15. MULTIVITAMIN (ONE DAY) TABLET [Concomitant]
     Indication: Product used for unknown indication
     Route: 048
  16. ASPIRIN 81MG CHEWABLETAB [Concomitant]
     Indication: Product used for unknown indication
     Route: 048
  17. fluticasone (FLONASE) [Concomitant]
     Indication: Product used for unknown indication
     Dosage: DOSE: 2 SPRAYS BY BOTH NOSTRILS ?FORM STRENGTH: 50 MCG/ACTUATION NASAL SPRAY
     Route: 045
  18. gabapentin (Neurontin) 600 mg tablet [Concomitant]
     Indication: Product used for unknown indication
     Route: 048

REACTIONS (2)
  - Cardiac arrest [Unknown]
  - Arterial occlusive disease [Unknown]

NARRATIVE: CASE EVENT DATE: 20210101
